FAERS Safety Report 12827780 (Version 1)
Quarter: 2016Q4

REPORT INFORMATION
  Report Type: Spontaneous
  Country: US (occurrence: US)
  Receive Date: 20161006
  Receipt Date: 20161006
  Transmission Date: 20170207
  Serious: No
  Sender: FDA-Public Use
  Company Number: US-ASTRAZENECA-2016SF03433

PATIENT
  Sex: Female

DRUGS (2)
  1. BRILINTA [Suspect]
     Active Substance: TICAGRELOR
     Indication: MYOCARDIAL INFARCTION
     Dosage: UNKNOWN
     Route: 048
  2. SHINGLES MEDICATION [Concomitant]
     Indication: HERPES ZOSTER
     Dosage: UNKNOWN
     Route: 065

REACTIONS (4)
  - Chest pain [Unknown]
  - Contusion [Unknown]
  - Dyspnoea [Unknown]
  - Herpes zoster [Unknown]
